FAERS Safety Report 8139376-0 (Version None)
Quarter: 2012Q1

REPORT INFORMATION
  Report Type: 
  Country: None (occurrence: None)
  Receive Date: 20120215
  Receipt Date: 20111124
  Transmission Date: 20120608
  Serious: Yes (Other)
  Sender: FDA-Public Use
  Company Number: PHHY2011CA95769

PATIENT
  Sex: Female

DRUGS (1)
  1. SANDOSTATIN LAR [Suspect]
     Indication: ACROMEGALY
     Dosage: 20 MG, (EVERY 4 WEEKS)
     Route: 030
     Dates: start: 20111025

REACTIONS (9)
  - PARAESTHESIA [None]
  - VISION BLURRED [None]
  - HYPERHIDROSIS [None]
  - RASH PRURITIC [None]
  - RASH [None]
  - ASTHENIA [None]
  - BALANCE DISORDER [None]
  - RASH MACULAR [None]
  - LOSS OF CONSCIOUSNESS [None]
